FAERS Safety Report 4474148-X (Version None)
Quarter: 2004Q4

REPORT INFORMATION
  Report Type: 
  Country: None (occurrence: None)
  Receive Date: 20041014
  Receipt Date: 20041004
  Transmission Date: 20050328
  Serious: Yes (Other)
  Sender: FDA-Public Use
  Company Number: 200419862GDDC

PATIENT
  Age: 53 Year
  Sex: Female
  Weight: 60 kg

DRUGS (4)
  1. DOCETAXEL [Suspect]
     Indication: BREAST CANCER
     Route: 041
     Dates: start: 20040804, end: 20040825
  2. PULMICORT [Concomitant]
     Indication: ASTHMA
     Dosage: DOSE: UNK
     Route: 055
  3. VENTOLIN [Concomitant]
     Indication: ASTHMA
     Dosage: DOSE: UNK
     Route: 055
  4. EPIRUBICIN [Concomitant]
     Dosage: DOSE: UNK

REACTIONS (5)
  - BLOOD PRESSURE DECREASED [None]
  - CHEST DISCOMFORT [None]
  - DIZZINESS [None]
  - DYSPNOEA [None]
  - FLUSHING [None]
